FAERS Safety Report 6142299-X (Version None)
Quarter: 2009Q2

REPORT INFORMATION
  Report Type: 
  Country: None (occurrence: None)
  Receive Date: 20090403
  Receipt Date: 20090331
  Transmission Date: 20091009
  Serious: Yes (Other)
  Sender: FDA-Public Use
  Company Number: US-PFIZER INC-2005173172

PATIENT
  Sex: Female
  Weight: 58 kg

DRUGS (11)
  1. PROVERA [Suspect]
     Indication: HORMONE REPLACEMENT THERAPY
     Dosage: UNK
     Route: 048
     Dates: start: 19940801, end: 19950801
  2. PROVERA [Suspect]
     Indication: MENOPAUSAL SYMPTOMS
     Dates: start: 19910101, end: 19960101
  3. PROVERA [Suspect]
     Dates: start: 19910101, end: 19960101
  4. PREMARIN [Suspect]
     Indication: HORMONE REPLACEMENT THERAPY
     Dosage: 0.625 MG, UNK
     Route: 065
     Dates: start: 19940801, end: 19950801
  5. PREMARIN [Suspect]
     Indication: MENOPAUSAL SYMPTOMS
  6. PREMPRO [Suspect]
     Indication: HORMONE REPLACEMENT THERAPY
     Dosage: UNK
     Route: 065
     Dates: start: 19950101, end: 19960101
  7. PREMPRO [Suspect]
     Indication: MENOPAUSAL SYMPTOMS
  8. ESTRADERM [Suspect]
     Indication: HORMONE REPLACEMENT THERAPY
     Dosage: UNK
     Route: 065
     Dates: start: 19910401, end: 19940101
  9. ESTRADERM [Suspect]
     Indication: MENOPAUSAL SYMPTOMS
  10. ESTRACE [Suspect]
     Indication: HORMONE REPLACEMENT THERAPY
     Dosage: UNK
     Dates: start: 19900101, end: 19910301
  11. AMOXICILLIN [Concomitant]
     Indication: MITRAL VALVE PROLAPSE
     Dosage: UNK

REACTIONS (1)
  - BREAST CANCER [None]
